FAERS Safety Report 9104871 (Version 9)
Quarter: 2013Q4

REPORT INFORMATION
  Report Type: Spontaneous
  Country: US (occurrence: US)
  Receive Date: 20130220
  Receipt Date: 20131106
  Transmission Date: 20140711
  Serious: Yes (Other)
  Sender: FDA-Public Use
  Company Number: US-009507513-1302USA008354

PATIENT
  Age: 57 Year
  Sex: Female
  Weight: 117.91 kg

DRUGS (10)
  1. PEGINTRON [Suspect]
     Indication: HEPATITIS C
     Dosage: REDIPEN
     Dates: start: 20130213, end: 201302
  2. PEGINTRON [Suspect]
     Dosage: REDIPEN
     Dates: start: 20130215, end: 20130215
  3. PEGINTRON [Suspect]
     Dosage: REDIPEN
     Dates: start: 20130320, end: 20130924
  4. REBETOL [Suspect]
     Indication: HEPATITIS C
     Dosage: UNK
     Route: 048
     Dates: start: 20130213, end: 201302
  5. REBETOL [Suspect]
     Dosage: UNK
     Route: 048
     Dates: start: 20130215, end: 20130215
  6. REBETOL [Suspect]
     Dosage: 1400 MG
     Route: 048
     Dates: start: 20130320, end: 201304
  7. REBETOL [Suspect]
     Dosage: 1000 MG, TWO PILLS IN THE MORNING, THREE PILLS AT NIGHT
     Route: 048
     Dates: start: 20130416
  8. REBETOL [Suspect]
     Dosage: 600 MG
     Route: 048
     Dates: start: 2013
  9. REBETOL [Suspect]
     Dosage: UNK
     Route: 048
     Dates: start: 20130320, end: 20130430
  10. VICTRELIS [Suspect]
     Indication: HEPATITIS C
     Dosage: UNK
     Route: 048
     Dates: start: 20130424, end: 20131001

REACTIONS (46)
  - VIIth nerve paralysis [Recovering/Resolving]
  - VIIth nerve paralysis [Recovering/Resolving]
  - VIIth nerve paralysis [Unknown]
  - VIIth nerve paralysis [Unknown]
  - VIIth nerve paralysis [Unknown]
  - Muscle tightness [Unknown]
  - Oedema [Unknown]
  - Hypoaesthesia [Unknown]
  - Thirst [Unknown]
  - Hypoaesthesia [Not Recovered/Not Resolved]
  - Dysgeusia [Unknown]
  - Anaemia [Recovering/Resolving]
  - Anaemia [Recovering/Resolving]
  - Anaemia [Recovering/Resolving]
  - Pain [Unknown]
  - Thirst [Unknown]
  - Dysgeusia [Unknown]
  - Tooth fracture [Unknown]
  - Tooth loss [Unknown]
  - Dry mouth [Unknown]
  - Vision blurred [Unknown]
  - Pain [Unknown]
  - Arthralgia [Unknown]
  - Hypoaesthesia eye [Unknown]
  - Ear pain [Unknown]
  - Vomiting [Unknown]
  - Weight decreased [Unknown]
  - Nausea [Unknown]
  - Nausea [Unknown]
  - Nausea [Unknown]
  - Influenza like illness [Unknown]
  - Dyspnoea [Unknown]
  - Dyspnoea [Unknown]
  - Dyspnoea [Unknown]
  - Fatigue [Unknown]
  - Depression [Unknown]
  - Haemoglobin decreased [Recovering/Resolving]
  - Haemoglobin decreased [Recovering/Resolving]
  - Haemoglobin decreased [Recovering/Resolving]
  - Haemoglobin decreased [Recovering/Resolving]
  - Haemoglobin decreased [Recovering/Resolving]
  - Headache [Unknown]
  - Malaise [Unknown]
  - Chills [Unknown]
  - Chills [Unknown]
  - Drug dose omission [Unknown]
